FAERS Safety Report 18480197 (Version 1)
Quarter: 2020Q4

REPORT INFORMATION
  Report Type: Spontaneous
  Country: US (occurrence: US)
  Receive Date: 20201109
  Receipt Date: 20201109
  Transmission Date: 20210114
  Serious: Yes (Other)
  Sender: FDA-Public Use
  Company Number: US-SPECGX-T202002182

PATIENT
  Age: 45 Year
  Sex: Female

DRUGS (4)
  1. OXYCODONE [Suspect]
     Active Substance: OXYCODONE
     Indication: CANCER PAIN
     Dosage: UNK
     Route: 065
  2. METHADONE [Suspect]
     Active Substance: METHADONE HYDROCHLORIDE
     Indication: HYPERAESTHESIA
     Dosage: 60 MILLIGRAM, Q6H
     Route: 048
  3. MORPHINE [Suspect]
     Active Substance: MORPHINE
     Indication: CANCER PAIN
     Dosage: UNK
     Route: 065
  4. LORAZEPAM. [Concomitant]
     Active Substance: LORAZEPAM
     Indication: MUSCLE DISCOMFORT
     Dosage: 1 TO 2 MILLIGRAM AS NEEDED
     Route: 065

REACTIONS (5)
  - Vomiting [Unknown]
  - Drug ineffective [Unknown]
  - Hyperaesthesia [Recovering/Resolving]
  - Nausea [Unknown]
  - Drug effective for unapproved indication [Unknown]
